FAERS Safety Report 25887718 (Version 1)
Quarter: 2025Q4

REPORT INFORMATION
  Report Type: Spontaneous
  Country: EU (occurrence: EU)
  Receive Date: 20251007
  Receipt Date: 20251007
  Transmission Date: 20260117
  Serious: Yes (Other)
  Sender: JOHNSON AND JOHNSON
  Company Number: None

PATIENT
  Age: 41 Year
  Sex: Male
  Weight: 79 kg

DRUGS (2)
  1. USTEKINUMAB [Suspect]
     Active Substance: USTEKINUMAB
     Indication: Psoriasis
     Dosage: 12/12 WEEKS
     Route: 058
     Dates: start: 20250521, end: 20250521
  2. STEQEYMA [Suspect]
     Active Substance: USTEKINUMAB-STBA
     Indication: Psoriasis
     Dosage: 12/12 WEEKS
     Route: 058
     Dates: start: 20250521, end: 20250521

REACTIONS (2)
  - Psoriasis [Not Recovered/Not Resolved]
  - Product substitution issue [Not Recovered/Not Resolved]

NARRATIVE: CASE EVENT DATE: 20250601
